FAERS Safety Report 5684659-7 (Version None)
Quarter: 2008Q1

REPORT INFORMATION
  Report Type: 
  Country: None (occurrence: None)
  Receive Date: 20080328
  Receipt Date: 20070504
  Transmission Date: 20080703
  Serious: Yes (Life-Threatening, Hospitalization)
  Sender: FDA-Public Use
  Company Number: US-BRISTOL-MYERS SQUIBB COMPANY-13770433

PATIENT
  Age: 79 Year
  Sex: Male
  Weight: 70 kg

DRUGS (4)
  1. CETUXIMAB [Suspect]
     Indication: NEOPLASM MALIGNANT
     Route: 042
     Dates: start: 20070328
  2. DIPHENHYDRAMINE HCL [Concomitant]
     Indication: PREMEDICATION
     Route: 042
  3. RANITIDINE [Concomitant]
     Indication: PREMEDICATION
     Route: 042
  4. DEXAMETHASONE TAB [Concomitant]
     Indication: PREMEDICATION
     Route: 042

REACTIONS (4)
  - COMA [None]
  - HYPERHIDROSIS [None]
  - HYPOTENSION [None]
  - PULSE ABSENT [None]
